FAERS Safety Report 13229374 (Version 1)
Quarter: 2017Q1

REPORT INFORMATION
  Report Type: Spontaneous
  Country: US (occurrence: US)
  Receive Date: 20170213
  Receipt Date: 20170213
  Transmission Date: 20170428
  Serious: Yes (Death)
  Sender: FDA-Public Use
  Company Number: None

PATIENT
  Age: 60 Year
  Sex: Male
  Weight: 109 kg

DRUGS (1)
  1. ALKA-SELTZER [Suspect]
     Active Substance: ANHYDROUS CITRIC ACID\ASPIRIN\SODIUM BICARBONATE

REACTIONS (6)
  - Haematemesis [None]
  - Pulseless electrical activity [None]
  - Duodenal ulcer perforation [None]
  - Gastrointestinal necrosis [None]
  - Respiratory arrest [None]
  - Cerebral infarction [None]

NARRATIVE: CASE EVENT DATE: 20170111
